FAERS Safety Report 25820198 (Version 1)
Quarter: 2025Q3

REPORT INFORMATION
  Report Type: Spontaneous
  Country: US (occurrence: US)
  Receive Date: 20250919
  Receipt Date: 20250919
  Transmission Date: 20251020
  Serious: No
  Sender: ABBVIE
  Company Number: US-ABBVIE-6456848

PATIENT
  Age: 55 Year
  Sex: Female
  Weight: 62.595 kg

DRUGS (5)
  1. LATISSE [Suspect]
     Active Substance: BIMATOPROST
     Indication: Growth of eyelashes
     Dosage: START DATE TEXT: 3 TO 4 WEEKS AGO IN  -AUG-2025?FORM STRENGTH: 0.3 MILLIGRAM/MILLILITERS
     Route: 061
  2. LATISSE [Suspect]
     Active Substance: BIMATOPROST
     Dosage: FORM STRENGTH: 0.3 MILLIGRAM/MILLILITERS
     Route: 061
     Dates: start: 2018, end: 202508
  3. LATISSE [Suspect]
     Active Substance: BIMATOPROST
     Dosage: FORM STRENGTH: 0.3 MILLIGRAM/MILLILITERS
     Route: 061
     Dates: start: 20250908, end: 20250908
  4. TYLENOL [Concomitant]
     Active Substance: ACETAMINOPHEN
     Indication: Headache
  5. IBUPROFEN [Concomitant]
     Active Substance: IBUPROFEN
     Indication: Headache

REACTIONS (8)
  - Skin exfoliation [Recovering/Resolving]
  - Chemical burn [Recovered/Resolved]
  - Suspected product contamination [Not Recovered/Not Resolved]
  - Skin exfoliation [Recovered/Resolved]
  - Erythema [Recovered/Resolved]
  - Erythema [Recovering/Resolving]
  - Chemical burn [Recovering/Resolving]
  - Suspected product quality issue [Not Recovered/Not Resolved]

NARRATIVE: CASE EVENT DATE: 20250101
